FAERS Safety Report 10192742 (Version 1)
Quarter: 2014Q2

REPORT INFORMATION
  Report Type: Spontaneous
  Country: US (occurrence: US)
  Receive Date: 20140523
  Receipt Date: 20140523
  Transmission Date: 20141212
  Serious: Yes (Other)
  Sender: FDA-Public Use
  Company Number: US-ALLERGAN-1410048US

PATIENT
  Age: 53 Year
  Sex: Male

DRUGS (1)
  1. OZURDEX [Suspect]
     Indication: RETINOPATHY PROLIFERATIVE
     Dosage: 0.7 MG, SINGLE
     Route: 031

REACTIONS (3)
  - Macular fibrosis [Unknown]
  - Retinal detachment [Unknown]
  - Off label use [Unknown]
